FAERS Safety Report 25429170 (Version 1)
Quarter: 2025Q2

REPORT INFORMATION
  Report Type: Spontaneous
  Country: US (occurrence: None)
  Receive Date: 20250611
  Receipt Date: 20250611
  Transmission Date: 20250716
  Serious: Yes (Hospitalization, Other)
  Sender: FDA-CTU
  Company Number: None

PATIENT
  Age: 57 Year
  Sex: Female

DRUGS (1)
  1. SIMLANDI [Suspect]
     Active Substance: ADALIMUMAB-RYVK
     Dates: start: 20241212, end: 20250314

REACTIONS (3)
  - Pyrexia [None]
  - Bedridden [None]
  - Therapy cessation [None]

NARRATIVE: CASE EVENT DATE: 20250314
